FAERS Safety Report 14893972 (Version 1)
Quarter: 2018Q2

REPORT INFORMATION
  Report Type: Spontaneous
  Country: US (occurrence: US)
  Receive Date: 20180514
  Receipt Date: 20180514
  Transmission Date: 20180711
  Serious: Yes (Other)
  Sender: FDA-Public Use
  Company Number: PHHY2018US002308

PATIENT
  Age: 55 Year
  Sex: Male
  Weight: 56 kg

DRUGS (2)
  1. VANCOMYCIN [Concomitant]
     Active Substance: VANCOMYCIN
     Indication: PNEUMONIA ASPIRATION
     Dosage: 1250 MG, Q8H
     Route: 042
  2. PIPERACILLIN AND TAZOBACTAM [Suspect]
     Active Substance: PIPERACILLIN SODIUM\TAZOBACTAM SODIUM
     Indication: PNEUMONIA ASPIRATION
     Dosage: 4.5 G, Q6H
     Route: 042

REACTIONS (3)
  - Cerebral haemorrhage [Recovering/Resolving]
  - Intraventricular haemorrhage [Recovering/Resolving]
  - Platelet dysfunction [Recovering/Resolving]
